FAERS Safety Report 10695212 (Version 1)
Quarter: 2015Q1

REPORT INFORMATION
  Report Type: Spontaneous
  Country: BR (occurrence: BR)
  Receive Date: 20150107
  Receipt Date: 20150107
  Transmission Date: 20150721
  Serious: Yes (Other)
  Sender: FDA-Public Use
  Company Number: BR-PFIZER INC-2015004210

PATIENT
  Age: 62 Year
  Sex: Female
  Weight: 62 kg

DRUGS (4)
  1. VIVACOR [Concomitant]
     Active Substance: BISOPROLOL FUMARATE
     Indication: BLOOD CHOLESTEROL
     Dosage: 1 TABLET, 1X/DAY
     Dates: start: 2010
  2. ZOLOFT [Suspect]
     Active Substance: SERTRALINE HYDROCHLORIDE
     Indication: ANTIDEPRESSANT THERAPY
     Dosage: 1 AND HALF TABLET (75 MG), 1X/DAY
     Route: 048
     Dates: start: 2010
  3. RIVOTRIL [Concomitant]
     Active Substance: CLONAZEPAM
     Indication: ANXIETY
     Dosage: 1 TABLET (0.50 MG), 1X/DAY
     Dates: start: 2005
  4. BICONCOR [Concomitant]
     Indication: BLOOD PRESSURE
     Dosage: 1 TABLET (12.5 MG), 1X/DAY
     Dates: start: 2005

REACTIONS (1)
  - Breast cancer [Unknown]

NARRATIVE: CASE EVENT DATE: 201301
